FAERS Safety Report 12719723 (Version 1)
Quarter: 2016Q3

REPORT INFORMATION
  Report Type: Spontaneous
  Country: US (occurrence: US)
  Receive Date: 20160907
  Receipt Date: 20160907
  Transmission Date: 20161109
  Serious: Yes (Other)
  Sender: FDA-Public Use
  Company Number: US-JNJFOC-20160613557

PATIENT
  Sex: Male

DRUGS (2)
  1. LEVAQUIN [Suspect]
     Active Substance: LEVOFLOXACIN
     Indication: LUNG DISORDER
     Route: 065
     Dates: start: 2016, end: 2016
  2. LEVAQUIN [Suspect]
     Active Substance: LEVOFLOXACIN
     Indication: LUNG DISORDER
     Route: 065
     Dates: start: 2016, end: 2016

REACTIONS (2)
  - Tendon rupture [Not Recovered/Not Resolved]
  - Plantar fasciitis [Not Recovered/Not Resolved]

NARRATIVE: CASE EVENT DATE: 2016
